FAERS Safety Report 18323871 (Version 2)
Quarter: 2020Q4

REPORT INFORMATION
  Report Type: Spontaneous
  Country: CN (occurrence: CN)
  Receive Date: 20200929
  Receipt Date: 20201006
  Transmission Date: 20210113
  Serious: Yes (Other)
  Sender: FDA-Public Use
  Company Number: CN-ASTRAZENECA-2020SF24704

PATIENT
  Age: 73 Year
  Sex: Female
  Weight: 62 kg

DRUGS (2)
  1. IRESSA [Suspect]
     Active Substance: GEFITINIB
     Indication: NON-SMALL CELL LUNG CANCER
     Route: 048
  2. IRESSA [Suspect]
     Active Substance: GEFITINIB
     Indication: METASTASES TO CENTRAL NERVOUS SYSTEM
     Route: 048

REACTIONS (7)
  - Diarrhoea [Recovered/Resolved]
  - Neoplasm progression [Unknown]
  - Gait disturbance [Unknown]
  - Thrombosis [Unknown]
  - Rash [Recovered/Resolved]
  - Loss of personal independence in daily activities [Unknown]
  - Brain oedema [Unknown]

NARRATIVE: CASE EVENT DATE: 202009
